FAERS Safety Report 8341961-8 (Version None)
Quarter: 2012Q2

REPORT INFORMATION
  Report Type: 
  Country: None (occurrence: None)
  Receive Date: 20120507
  Receipt Date: 20120424
  Transmission Date: 20120825
  Serious: Yes (Hospitalization, Other)
  Sender: FDA-Public Use
  Company Number: US-BAXTER-2012BAX001848

PATIENT
  Sex: Female

DRUGS (1)
  1. DIANEAL [Suspect]
     Route: 033

REACTIONS (3)
  - INFECTION [None]
  - HYPOTENSION [None]
  - FLUID IMBALANCE [None]
